FAERS Safety Report 18239379 (Version 3)
Quarter: 2020Q4

REPORT INFORMATION
  Report Type: Other
  Country: CA (occurrence: CA)
  Receive Date: 20200907
  Receipt Date: 20201005
  Transmission Date: 20210113
  Serious: Yes (Other)
  Sender: FDA-Public Use
  Company Number: CA-ROCHE-2439443

PATIENT
  Age: 75 Year
  Sex: Female

DRUGS (14)
  1. ACTEMRA [Suspect]
     Active Substance: TOCILIZUMAB
     Indication: VASCULITIS
     Dosage: ON HOLD FOR ONE WEEK (ADVISED ON 22/JAN/2020)
     Route: 058
     Dates: start: 20190814, end: 202008
  2. DIOVAN [Concomitant]
     Active Substance: VALSARTAN
     Indication: PRODUCT USED FOR UNKNOWN INDICATION
  3. PANTOPRAZOLE [Concomitant]
     Active Substance: PANTOPRAZOLE
     Indication: PRODUCT USED FOR UNKNOWN INDICATION
  4. JANUMET [Concomitant]
     Active Substance: METFORMIN HYDROCHLORIDE\SITAGLIPTIN PHOSPHATE
     Indication: PRODUCT USED FOR UNKNOWN INDICATION
  5. SIMVASTATIN. [Concomitant]
     Active Substance: SIMVASTATIN
     Indication: PRODUCT USED FOR UNKNOWN INDICATION
  6. ACTEMRA [Suspect]
     Active Substance: TOCILIZUMAB
     Indication: GIANT CELL ARTERITIS
  7. PREDNISONE. [Concomitant]
     Active Substance: PREDNISONE
  8. PREDNISONE. [Concomitant]
     Active Substance: PREDNISONE
     Route: 048
     Dates: start: 20200827
  9. LEVOTHYROXINE. [Concomitant]
     Active Substance: LEVOTHYROXINE
     Route: 048
  10. ACTONEL [Concomitant]
     Active Substance: RISEDRONATE SODIUM
     Indication: PRODUCT USED FOR UNKNOWN INDICATION
  11. PREDNISONE. [Concomitant]
     Active Substance: PREDNISONE
     Dates: start: 201904, end: 202002
  12. APO-RISEDRONATE [Concomitant]
     Active Substance: RISEDRONATE SODIUM
     Indication: PRODUCT USED FOR UNKNOWN INDICATION
  13. FELODIPINE. [Concomitant]
     Active Substance: FELODIPINE
     Indication: PRODUCT USED FOR UNKNOWN INDICATION
  14. DOMPERIDONE [Concomitant]
     Active Substance: DOMPERIDONE
     Indication: VOMITING
     Dates: start: 202001

REACTIONS (35)
  - Rash vesicular [Unknown]
  - Bone pain [Not Recovered/Not Resolved]
  - Ear pain [Unknown]
  - Malaise [Unknown]
  - Vomiting [Not Recovered/Not Resolved]
  - Joint swelling [Not Recovered/Not Resolved]
  - Skin reaction [Recovering/Resolving]
  - Dysuria [Unknown]
  - Eczema [Not Recovered/Not Resolved]
  - C-reactive protein increased [Unknown]
  - Rash [Recovering/Resolving]
  - Oral herpes [Recovered/Resolved]
  - Toothache [Not Recovered/Not Resolved]
  - Nausea [Not Recovered/Not Resolved]
  - Arthralgia [Unknown]
  - Urticaria [Unknown]
  - Alanine aminotransferase increased [Unknown]
  - Blood iron decreased [Unknown]
  - Diarrhoea [Not Recovered/Not Resolved]
  - Pain in extremity [Unknown]
  - Red blood cell count decreased [Unknown]
  - Aspartate aminotransferase increased [Unknown]
  - Glomerular filtration rate decreased [Unknown]
  - Erythema [Recovering/Resolving]
  - Pain [Unknown]
  - Headache [Unknown]
  - Fatigue [Unknown]
  - Angiopathy [Unknown]
  - Glomerular filtration rate increased [Unknown]
  - Haemoglobin decreased [Unknown]
  - Tooth disorder [Unknown]
  - Vomiting [Recovering/Resolving]
  - Cystitis [Recovering/Resolving]
  - Abdominal pain [Not Recovered/Not Resolved]
  - Blood creatinine increased [Unknown]

NARRATIVE: CASE EVENT DATE: 20200717
